FAERS Safety Report 21056304 (Version 5)
Quarter: 2022Q3

REPORT INFORMATION
  Report Type: Report from Study
  Country: FR (occurrence: None)
  Receive Date: 20220708
  Receipt Date: 20220927
  Transmission Date: 20221026
  Serious: Yes (Hospitalization)
  Sender: FDA-Public Use
  Company Number: FR-ROCHE-3128833

PATIENT
  Age: 70 Year
  Sex: Female
  Weight: 55.5 kg

DRUGS (16)
  1. OBINUTUZUMAB [Suspect]
     Active Substance: OBINUTUZUMAB
     Indication: Diffuse large B-cell lymphoma
     Dosage: DATE OF MOST RECENT DOSE (900 MG) OF STUDY DRUG PRIOR TO SAE: 23/JUN/2022
     Route: 042
     Dates: start: 20220622
  2. GEMCITABINE [Suspect]
     Active Substance: GEMCITABINE
     Indication: Diffuse large B-cell lymphoma
     Dosage: DATE OF MOST RECENT DOSE (1560 MG) OF STUDY DRUG PRIOR TO SAE: 23/JUN/2022
     Route: 042
     Dates: start: 20220623
  3. OXALIPLATIN [Suspect]
     Active Substance: OXALIPLATIN
     Indication: Diffuse large B-cell lymphoma
     Dosage: DATE OF MOST RECENT DOSE (156 MG) OF STUDY DRUG PRIOR TO SAE: 23/JUN/2022
     Route: 042
     Dates: start: 20220623
  4. OXYGEN [Concomitant]
     Active Substance: OXYGEN
     Indication: Hypoxia
  5. SKENAN [Concomitant]
     Active Substance: MORPHINE SULFATE
     Indication: Osteoporosis
     Route: 048
     Dates: end: 20220830
  6. URSODIOL [Concomitant]
     Active Substance: URSODIOL
     Indication: Dyslipidaemia
     Route: 048
  7. FILGRASTIM [Concomitant]
     Active Substance: FILGRASTIM
     Indication: Prophylaxis
     Route: 058
     Dates: start: 20220623
  8. VALACYCLOVIR HYDROCHLORIDE [Concomitant]
     Active Substance: VALACYCLOVIR HYDROCHLORIDE
     Indication: Infection prophylaxis
     Route: 048
     Dates: start: 20220623
  9. BACTRIM [Concomitant]
     Active Substance: SULFAMETHOXAZOLE\TRIMETHOPRIM
     Indication: Infection prophylaxis
     Dosage: 1 CAPSULE
     Route: 048
     Dates: start: 20220623
  10. PANTOPRAZOLE [Concomitant]
     Active Substance: PANTOPRAZOLE
     Indication: Prophylaxis
     Route: 048
     Dates: start: 20220623
  11. POLARAMINE [Concomitant]
     Active Substance: DEXCHLORPHENIRAMINE MALEATE
     Indication: Cytokine release syndrome
     Route: 042
     Dates: start: 20220622, end: 20220622
  12. POLARAMINE [Concomitant]
     Active Substance: DEXCHLORPHENIRAMINE MALEATE
     Route: 048
     Dates: start: 20220630, end: 20220630
  13. DEXAMETHASONE [Concomitant]
     Active Substance: DEXAMETHASONE
     Indication: Cytokine release syndrome
     Route: 065
     Dates: start: 20220622, end: 20220622
  14. DEXAMETHASONE [Concomitant]
     Active Substance: DEXAMETHASONE
     Route: 048
     Dates: start: 20220630, end: 20220630
  15. METOCLOPRAMIDE [Concomitant]
     Active Substance: METOCLOPRAMIDE
     Indication: Prophylaxis of nausea and vomiting
     Route: 048
     Dates: start: 20220622
  16. MORPHINE SULFATE [Concomitant]
     Active Substance: MORPHINE SULFATE
     Indication: Bone pain
     Route: 048
     Dates: start: 20220623, end: 20220830

REACTIONS (1)
  - Hepatic cytolysis [Recovered/Resolved]

NARRATIVE: CASE EVENT DATE: 20220628
